FAERS Safety Report 18987945 (Version 1)
Quarter: 2021Q1

REPORT INFORMATION
  Report Type: Spontaneous
  Country: CN (occurrence: CN)
  Receive Date: 20210309
  Receipt Date: 20210309
  Transmission Date: 20210420
  Serious: Yes (Other)
  Sender: FDA-Public Use
  Company Number: CN-GLAXOSMITHKLINE-CNCH2021APC008594

PATIENT
  Age: 41 Year
  Sex: Female

DRUGS (10)
  1. CHLORPHENAMINE MALEATE [Concomitant]
     Active Substance: CHLORPHENIRAMINE MALEATE
     Indication: PRURITUS
  2. IBUPROFEN. [Suspect]
     Active Substance: IBUPROFEN
     Indication: PYREXIA
     Dosage: UNK
     Route: 048
  3. THIAMAZOLE [Suspect]
     Active Substance: METHIMAZOLE
     Dosage: 5 MG, TID
     Route: 048
     Dates: start: 20191012
  4. CHLORPHENAMINE MALEATE [Concomitant]
     Active Substance: CHLORPHENIRAMINE MALEATE
     Indication: RASH
     Dosage: UNK
  5. NIMESULIDE [Suspect]
     Active Substance: NIMESULIDE
     Indication: PYREXIA
     Dosage: UNK
     Route: 048
  6. PIPERACILLIN AND SULBACTAM [Suspect]
     Active Substance: PIPERACILLIN\SULBACTAM
     Indication: INFECTION
     Dosage: 0.5 G, TID
     Route: 042
  7. FOSCARNET SODIUM. [Suspect]
     Active Substance: FOSCARNET SODIUM
     Indication: ANTIVIRAL TREATMENT
     Dosage: UNK
  8. PENCICLOVIR. [Suspect]
     Active Substance: PENCICLOVIR
     Indication: ANTIVIRAL TREATMENT
     Dosage: UNK
  9. THIAMAZOLE [Suspect]
     Active Substance: METHIMAZOLE
     Indication: HYPERTHYROIDISM
     Dosage: 5 MG, TID
     Route: 048
  10. LEVOFLOXACIN. [Suspect]
     Active Substance: LEVOFLOXACIN
     Indication: INFECTION
     Dosage: 0.4 G, QD
     Route: 042

REACTIONS (5)
  - Liver injury [Unknown]
  - Sinus tachycardia [Unknown]
  - Jaundice [Unknown]
  - Medication error [Unknown]
  - Myalgia [Unknown]

NARRATIVE: CASE EVENT DATE: 20191013
